FAERS Safety Report 6724001-3 (Version None)
Quarter: 2010Q2

REPORT INFORMATION
  Report Type: 
  Country: None (occurrence: None)
  Receive Date: 20100513
  Receipt Date: 20100505
  Transmission Date: 20101027
  Serious: Yes (Hospitalization)
  Sender: FDA-Public Use
  Company Number: A0785425A

PATIENT
  Age: 61 Year
  Sex: Female

DRUGS (2)
  1. AVANDIA [Suspect]
     Route: 065
     Dates: start: 20000101, end: 20020101
  2. AVANDAMET [Suspect]
     Dates: start: 20020101, end: 20060801

REACTIONS (5)
  - CARDIAC FAILURE CONGESTIVE [None]
  - CHEST PAIN [None]
  - DECREASED ACTIVITY [None]
  - DYSPNOEA [None]
  - OEDEMA [None]
